FAERS Safety Report 14937475 (Version 4)
Quarter: 2019Q4

REPORT INFORMATION
  Report Type: Report from Study
  Country: US (occurrence: US)
  Receive Date: 20180525
  Receipt Date: 20191223
  Transmission Date: 20200122
  Serious: Yes (Other)
  Sender: FDA-Public Use
  Company Number: US-ROCHE-1372728

PATIENT
  Sex: Female
  Weight: 48.12 kg

DRUGS (18)
  1. SYMBICORT [Concomitant]
     Active Substance: BUDESONIDE\FORMOTEROL FUMARATE DIHYDRATE
     Dosage: 160/4.5
     Route: 065
     Dates: start: 2014
  2. ALPHAGAN P [Concomitant]
     Active Substance: BRIMONIDINE TARTRATE
     Dosage: 1 DROP BOTH EYES
     Route: 065
  3. XOLAIR [Suspect]
     Active Substance: OMALIZUMAB
     Indication: ASTHMA
     Route: 058
     Dates: start: 20080514
  4. XOLAIR [Suspect]
     Active Substance: OMALIZUMAB
     Indication: ASTHMA
     Dosage: ONGOING- YES
     Route: 058
     Dates: start: 2010
  5. XOLAIR [Suspect]
     Active Substance: OMALIZUMAB
     Dosage: SUBSEQUENT DOSES ON 14/MAR/2018, 16/APR/2019, 13/JUN/2018, 11/JUL/2018 AND 13/AUG/2018
     Route: 058
     Dates: start: 20180213
  6. PLAVIX [Concomitant]
     Active Substance: CLOPIDOGREL BISULFATE
     Route: 065
  7. ALBUTEROL [SALBUTAMOL] [Concomitant]
     Active Substance: ALBUTEROL
     Dosage: 90 MCG EVERY 4-6 HOURS
     Route: 065
  8. NITRO [GLYCERYL TRINITRATE] [Concomitant]
     Active Substance: NITROGLYCERIN
  9. FENOFIBRATE. [Concomitant]
     Active Substance: FENOFIBRATE
     Route: 065
  10. VENTOLINE [SALBUTAMOL] [Concomitant]
     Active Substance: ALBUTEROL SULFATE
     Indication: ASTHMA
     Dosage: PRN
     Route: 065
  11. ASPIRIN [ACETYLSALICYLIC ACID] [Concomitant]
     Active Substance: ASPIRIN
     Route: 065
     Dates: start: 2015
  12. FISH OIL [Concomitant]
     Active Substance: FISH OIL
     Route: 065
  13. PEPCID [Concomitant]
     Active Substance: FAMOTIDINE
     Dosage: AS REQUIRED
     Route: 065
  14. QUININE [Concomitant]
     Active Substance: QUININE
     Dosage: AS REQUIRED
     Route: 065
  15. XOLAIR [Suspect]
     Active Substance: OMALIZUMAB
     Dosage: 1 MONTH INTERVAL, ONGOING NO
     Route: 058
     Dates: start: 2012, end: 20180513
  16. LATANOPROST. [Concomitant]
     Active Substance: LATANOPROST
     Route: 065
  17. ALBUTEROL [SALBUTAMOL] [Concomitant]
     Active Substance: ALBUTEROL
     Indication: ASTHMA
     Route: 065
     Dates: start: 1991
  18. EPIPEN [Concomitant]
     Active Substance: EPINEPHRINE
     Route: 065

REACTIONS (27)
  - Intracranial mass [Unknown]
  - Intermittent claudication [Unknown]
  - Joint swelling [Unknown]
  - Dyspnoea [Unknown]
  - Choking [Unknown]
  - Cerebrovascular accident [Unknown]
  - Skin cancer [Not Recovered/Not Resolved]
  - Sputum discoloured [Unknown]
  - Lung disorder [Unknown]
  - Cardiac disorder [Unknown]
  - Squamous cell carcinoma of skin [Not Recovered/Not Resolved]
  - Tremor [Not Recovered/Not Resolved]
  - Pain in extremity [Not Recovered/Not Resolved]
  - Dysphagia [Unknown]
  - Heart rate increased [Unknown]
  - Dizziness [Unknown]
  - Rheumatoid arthritis [Not Recovered/Not Resolved]
  - Hyperventilation [Unknown]
  - Hypoaesthesia [Unknown]
  - Dyspepsia [Not Recovered/Not Resolved]
  - Oxygen saturation decreased [Unknown]
  - Asthma [Unknown]
  - Dyspnoea [Recovering/Resolving]
  - Headache [Unknown]
  - Osteoarthritis [Unknown]
  - Basal cell carcinoma [Not Recovered/Not Resolved]
  - Viral infection [Unknown]

NARRATIVE: CASE EVENT DATE: 2011
